FAERS Safety Report 5804480-6 (Version None)
Quarter: 2008Q3

REPORT INFORMATION
  Report Type: 
  Country: None (occurrence: None)
  Receive Date: 20080709
  Receipt Date: 20080703
  Transmission Date: 20090109
  Serious: Yes (Hospitalization)
  Sender: FDA-Public Use
  Company Number: B0526529A

PATIENT
  Age: 80 Year
  Sex: Male
  Weight: 65 kg

DRUGS (7)
  1. VALTREX [Suspect]
     Indication: HERPES ZOSTER
     Dosage: 1000MG THREE TIMES PER DAY
     Route: 048
     Dates: start: 20080616, end: 20080622
  2. SYMMETREL [Concomitant]
     Indication: PARKINSON'S DISEASE
     Dosage: 50MG THREE TIMES PER DAY
     Route: 048
  3. MUCOSOLVAN [Concomitant]
     Route: 048
  4. NU-LOTAN [Concomitant]
     Indication: HYPERTENSION
     Route: 048
  5. NORVASC [Concomitant]
     Indication: HYPERTENSION
     Route: 048
  6. LOXONIN [Concomitant]
     Route: 065
  7. SELBEX [Concomitant]
     Route: 048

REACTIONS (2)
  - NERVOUS SYSTEM DISORDER [None]
  - RENAL DISORDER [None]
